FAERS Safety Report 8344147-6 (Version None)
Quarter: 2012Q2

REPORT INFORMATION
  Report Type: 
  Country: None (occurrence: None)
  Receive Date: 20120508
  Receipt Date: 20120502
  Transmission Date: 20120825
  Serious: Yes (Other)
  Sender: FDA-Public Use
  Company Number: PHHY2012MX038476

PATIENT
  Sex: Female

DRUGS (2)
  1. EXFORGE [Concomitant]
     Indication: HYPERTENSION
     Dosage: UNK UKN, ONCE/SINGLE
     Route: 048
     Dates: start: 20070101
  2. ZOLEDRONOC ACID [Suspect]
     Indication: OSTEOPOROSIS
     Dosage: 5MG/100 ML, EACH YEAR
     Route: 042
     Dates: start: 20110501

REACTIONS (6)
  - MUSCLE SPASMS [None]
  - INTERVERTEBRAL DISC DISPLACEMENT [None]
  - BACK PAIN [None]
  - BONE DENSITY DECREASED [None]
  - BONE PAIN [None]
  - BURNING SENSATION [None]
